FAERS Safety Report 11346984 (Version 1)
Quarter: 2015Q3

REPORT INFORMATION
  Report Type: Spontaneous
  Country: US (occurrence: US)
  Receive Date: 20150803
  Receipt Date: 20150803
  Transmission Date: 20151125
  Serious: No
  Sender: FDA-Public Use
  Company Number: US-ELI_LILLY_AND_COMPANY-US201102006232

PATIENT
  Age: 33 Year
  Sex: Male

DRUGS (2)
  1. ZYPREXA ZYDIS [Suspect]
     Active Substance: OLANZAPINE
     Dosage: 10 MG, DAILY (1/D)
     Dates: start: 20101226, end: 20101229
  2. ZYPREXA ZYDIS [Suspect]
     Active Substance: OLANZAPINE
     Indication: SCHIZOPHRENIA
     Dosage: 5 MG, DAILY (1/D)
     Dates: start: 20101225, end: 20101225

REACTIONS (7)
  - Anxiety [Unknown]
  - Intentional product misuse [Unknown]
  - Bruxism [Unknown]
  - Abdominal pain upper [Unknown]
  - Feeling abnormal [Unknown]
  - Vomiting [Unknown]
  - Thought blocking [Unknown]

NARRATIVE: CASE EVENT DATE: 20101229
